FAERS Safety Report 16596848 (Version 3)
Quarter: 2020Q4

REPORT INFORMATION
  Report Type: Spontaneous
  Country: DE (occurrence: DE)
  Receive Date: 20190719
  Receipt Date: 20201012
  Transmission Date: 20210113
  Serious: Yes (Other)
  Sender: FDA-Public Use
  Company Number: DE-TEVA-2019-DE-1079458

PATIENT
  Age: 44 Year
  Sex: Male
  Weight: 88 kg

DRUGS (1)
  1. VALSARTAN ABZ 160 MG [Suspect]
     Active Substance: VALSARTAN
     Dosage: 320 MILLIGRAM DAILY; INTAKE ONE EACH IN THE MORNING AND IN THE EVENING
     Route: 048
     Dates: start: 201712, end: 20181205

REACTIONS (8)
  - Hypoaesthesia oral [Not Recovered/Not Resolved]
  - Hypotonia [Unknown]
  - Fatigue [Unknown]
  - Tongue discomfort [Not Recovered/Not Resolved]
  - Hypoaesthesia [Not Recovered/Not Resolved]
  - Tongue neoplasm malignant stage unspecified [Recovered/Resolved with Sequelae]
  - Product impurity [Recovered/Resolved]
  - Hypoaesthesia [Not Recovered/Not Resolved]

NARRATIVE: CASE EVENT DATE: 2016
